FAERS Safety Report 5745732-8 (Version None)
Quarter: 2008Q2

REPORT INFORMATION
  Report Type: 
  Country: None (occurrence: None)
  Receive Date: 20080519
  Receipt Date: 20080318
  Transmission Date: 20081010
  Serious: No
  Sender: FDA-Public Use
  Company Number: TPA2008A00351

PATIENT
  Age: 54 Year
  Sex: Female
  Weight: 115.6672 kg

DRUGS (5)
  1. ROZEREM [Suspect]
     Indication: INSOMNIA
     Dosage: 8 MG, QHS, PER ORAL
     Route: 048
     Dates: start: 20080317
  2. MORPHINE SULFATE [Concomitant]
  3. PREVPAC [Concomitant]
  4. LIPITOR [Concomitant]
  5. LISINOPRIL/HCTZ (HYDROCHLOROTHIAZIDE, LISINOPRIL) [Concomitant]

REACTIONS (2)
  - MIDDLE INSOMNIA [None]
  - POOR QUALITY SLEEP [None]
